FAERS Safety Report 5143343-9 (Version None)
Quarter: 2006Q4

REPORT INFORMATION
  Report Type: 
  Country: None (occurrence: None)
  Receive Date: 20061030
  Receipt Date: 20061018
  Transmission Date: 20070319
  Serious: Yes (Hospitalization)
  Sender: FDA-Public Use
  Company Number: 2006099298

PATIENT
  Age: 63 Year
  Sex: Female
  Weight: 53 kg

DRUGS (15)
  1. CYTOTEC [Suspect]
     Indication: ANGINA PECTORIS
     Dosage: 400 MCG (200 MCG, 2 IN 1 D), ORAL
     Route: 048
     Dates: start: 20060728, end: 20060807
  2. TICLOPIDINE HCL [Suspect]
     Indication: ANGINA PECTORIS
     Dosage: 200 MG (100 MG, 2 IN 1 D), ORAL
     Route: 048
     Dates: start: 20060728, end: 20060805
  3. IOPAMIDOL [Suspect]
     Indication: INVESTIGATION
     Dosage: 1 BOTTLE (1 IN 1 TOTAL)
     Dates: start: 20060727, end: 20060727
  4. ASPIRIN [Concomitant]
  5. PRAVASTATIN [Concomitant]
  6. BEZATOL - SLOW RELEASE (BEZAFIBRATE) [Concomitant]
  7. TRAZODONE HCL [Concomitant]
  8. PAXIL [Concomitant]
  9. ETHYL LOFLAZEPATE (ETHYL LOFLAZEPATE) [Concomitant]
  10. ALLELOCK (OLOPATADINE HYDROCHLORIDE) [Concomitant]
  11. MUCOSTA (REBAMIPIDE) [Concomitant]
  12. ALUMINUM HYDROXIDE AND MAGNESIUM TRISILICATE [Concomitant]
  13. BROTIZOLAM (BROTIZOLAM) [Concomitant]
  14. FLUNITRAZEPAM (FLUNITRAZEPAM) [Concomitant]
  15. IOXILAN (IOXILAN) [Concomitant]

REACTIONS (3)
  - ERYTHEMA MULTIFORME [None]
  - LABORATORY TEST ABNORMAL [None]
  - STOMACH DISCOMFORT [None]
